FAERS Safety Report 5578699-6 (Version None)
Quarter: 2007Q4

REPORT INFORMATION
  Report Type: 
  Country: None (occurrence: None)
  Receive Date: 20071227
  Receipt Date: 20071227
  Transmission Date: 20080405
  Serious: Yes (Life-Threatening, Hospitalization, Disabling)
  Sender: FDA-Public Use
  Company Number: None

PATIENT
  Age: 44 Year
  Sex: Female
  Weight: 70.3075 kg

DRUGS (2)
  1. KENALOG [Suspect]
  2. LIDOCAINE [Suspect]

REACTIONS (7)
  - CARDIAC ARREST [None]
  - CONVULSION [None]
  - DIPLOPIA [None]
  - FOAMING AT MOUTH [None]
  - INCONTINENCE [None]
  - LOSS OF CONSCIOUSNESS [None]
  - STRABISMUS [None]
